FAERS Safety Report 4428668-4 (Version None)
Quarter: 2004Q3

REPORT INFORMATION
  Report Type: 
  Country: None (occurrence: None)
  Receive Date: 20040818
  Receipt Date: 20031006
  Transmission Date: 20050211
  Serious: No
  Sender: FDA-Public Use
  Company Number: US-BRISTOL-MYERS SQUIBB COMPANY-12403200

PATIENT
  Age: 80 Year
  Sex: Female
  Weight: 49 kg

DRUGS (2)
  1. TEQUIN [Suspect]
     Indication: RESPIRATORY TRACT INFECTION
     Dosage: EXP. DATE 9/30/04
     Route: 048
     Dates: start: 20031003, end: 20031004
  2. DYAZIDE [Concomitant]

REACTIONS (4)
  - ARTHRALGIA [None]
  - COLD SWEAT [None]
  - DIZZINESS [None]
  - HYPOKINESIA [None]
